FAERS Safety Report 25156128 (Version 2)
Quarter: 2025Q3

REPORT INFORMATION
  Report Type: Spontaneous
  Country: EU (occurrence: EU)
  Receive Date: 20250403
  Receipt Date: 20250707
  Transmission Date: 20251021
  Serious: Yes (Congenital Anomaly, Other)
  Sender: SANDOZ
  Company Number: None

PATIENT
  Age: 3 Month
  Sex: Female
  Weight: 6.5 kg

DRUGS (1)
  1. HYRIMOZ [Suspect]
     Active Substance: ADALIMUMAB-ADAZ
     Indication: Arthritis
     Route: 064
     Dates: start: 20220603, end: 20240624

REACTIONS (3)
  - Intracranial pressure increased [Recovering/Resolving]
  - Macrocephaly [Not Recovered/Not Resolved]
  - Foetal exposure during pregnancy [Recovered/Resolved]

NARRATIVE: CASE EVENT DATE: 20240904
